FAERS Safety Report 7534657-3 (Version None)
Quarter: 2011Q2

REPORT INFORMATION
  Report Type: 
  Country: None (occurrence: None)
  Receive Date: 20110609
  Receipt Date: 20110225
  Transmission Date: 20111010
  Serious: Yes (Other)
  Sender: FDA-Public Use
  Company Number: PHHY2011CA15639

PATIENT
  Sex: Female

DRUGS (8)
  1. TYLENOL-500 [Concomitant]
  2. AREDIA [Suspect]
     Indication: OSTEOPOROSIS
     Dosage: UNK
  3. SIMVASTATIN [Concomitant]
     Dosage: 20 MG, UNK
  4. CALCIUM CITRATE [Concomitant]
     Dosage: 300 MG, BID
     Route: 048
  5. VITAMIN D [Concomitant]
  6. METOPROLOL [Concomitant]
     Dosage: 50 MG, BID
  7. PERINDOPRIL ERBUMINE [Concomitant]
     Dosage: 8 MG, AM
  8. DYAZIDE [Concomitant]

REACTIONS (4)
  - DIVERTICULUM [None]
  - DIARRHOEA [None]
  - CONSTIPATION [None]
  - BOWEL MOVEMENT IRREGULARITY [None]
